FAERS Safety Report 20992239 (Version 1)
Quarter: 2022Q2

REPORT INFORMATION
  Report Type: Spontaneous
  Country: US (occurrence: None)
  Receive Date: 20220621
  Receipt Date: 20220621
  Transmission Date: 20220721
  Serious: No
  Sender: FDA-Public Use
  Company Number: None

PATIENT
  Age: 72 Year
  Sex: Female

DRUGS (1)
  1. HUMIRA [Suspect]
     Active Substance: ADALIMUMAB
     Indication: Psoriasis
     Dosage: OTHER FREQUENCY : EVERY 2 WEEKS AS ;?
     Route: 058
     Dates: start: 201811

REACTIONS (6)
  - Illness [None]
  - Arthralgia [None]
  - Fall [None]
  - Hip fracture [None]
  - Gastric ulcer [None]
  - Therapy interrupted [None]
